FAERS Safety Report 16338483 (Version 5)
Quarter: 2021Q4

REPORT INFORMATION
  Report Type: Other
  Country: DE (occurrence: DE)
  Receive Date: 20190521
  Receipt Date: 20211028
  Transmission Date: 20220303
  Serious: Yes (Hospitalization)
  Sender: FDA-Public Use
  Company Number: DE-ROCHE-2322194

PATIENT
  Age: 56 Year
  Sex: Male
  Weight: 74 kg

DRUGS (20)
  1. OCRELIZUMAB [Suspect]
     Active Substance: OCRELIZUMAB
     Indication: Relapsing multiple sclerosis
     Dosage: SECOND DOSE 08/MAY/2018
     Route: 042
     Dates: start: 20180425, end: 20180508
  2. OCRELIZUMAB [Suspect]
     Active Substance: OCRELIZUMAB
     Route: 042
     Dates: start: 20181015
  3. BETHANECHOL CHLORIDE [Concomitant]
     Active Substance: BETHANECHOL CHLORIDE
     Dosage: ONGOING
     Route: 048
  4. CYMBALTA [Concomitant]
     Active Substance: DULOXETINE HYDROCHLORIDE
     Indication: Neuralgia
     Dosage: ONGOING
     Route: 048
     Dates: start: 201205
  5. AERIUS [Concomitant]
     Route: 048
     Dates: start: 20180507, end: 20180509
  6. AERIUS [Concomitant]
     Route: 048
     Dates: start: 20181014, end: 20181016
  7. AERIUS [Concomitant]
     Route: 048
     Dates: start: 20190424, end: 20190426
  8. PREDNISOLONE [Concomitant]
     Active Substance: PREDNISOLONE
     Route: 042
     Dates: start: 20180425
  9. RANITIDINE [Concomitant]
     Active Substance: RANITIDINE
     Route: 048
     Dates: start: 20180424, end: 20180426
  10. RANITIDINE [Concomitant]
     Active Substance: RANITIDINE
     Route: 048
     Dates: start: 20180507, end: 20180509
  11. RANITIDINE [Concomitant]
     Active Substance: RANITIDINE
     Route: 048
     Dates: start: 20181014, end: 20181016
  12. ATORVASTATIN [Concomitant]
     Active Substance: ATORVASTATIN
     Indication: Arteriosclerosis
     Dosage: ONGOING
     Route: 048
     Dates: start: 201601
  13. BACLOFEN [Concomitant]
     Active Substance: BACLOFEN
     Indication: Muscle spasticity
     Dosage: ONGOING
     Route: 048
  14. BACLOFEN [Concomitant]
     Active Substance: BACLOFEN
     Dosage: ONGOING
     Route: 048
  15. LYRICA [Concomitant]
     Active Substance: PREGABALIN
     Indication: Neuralgia
     Dosage: ONGOING
     Route: 048
  16. CHOLECALCIFEROL [Concomitant]
     Active Substance: CHOLECALCIFEROL
     Indication: Vitamin D deficiency
     Route: 048
     Dates: start: 20130226
  17. PREDNISOLONE [Concomitant]
     Active Substance: PREDNISOLONE
     Route: 042
     Dates: start: 20180508, end: 20180508
  18. PREDNISOLONE [Concomitant]
     Active Substance: PREDNISOLONE
     Route: 042
     Dates: start: 20181015, end: 20181015
  19. PREDNISOLONE [Concomitant]
     Active Substance: PREDNISOLONE
     Route: 042
     Dates: start: 20190425, end: 20190425
  20. NABIXIMOLS [Concomitant]
     Active Substance: NABIXIMOLS
     Indication: Muscle spasticity
     Route: 048
     Dates: start: 201910

REACTIONS (4)
  - Urinary tract infection [Recovered/Resolved]
  - Urosepsis [Unknown]
  - Nasopharyngitis [Recovered/Resolved]
  - Hiccups [Recovered/Resolved]

NARRATIVE: CASE EVENT DATE: 20180508
